FAERS Safety Report 14072564 (Version 1)
Quarter: 2017Q4

REPORT INFORMATION
  Report Type: Spontaneous
  Country: US (occurrence: US)
  Receive Date: 20171010
  Receipt Date: 20171010
  Transmission Date: 20180321
  Serious: No
  Sender: FDA-Public Use
  Company Number: US-SA-2017SA170262

PATIENT
  Age: 52 Year
  Sex: Female

DRUGS (10)
  1. CYCLOBENZAPRINE. [Concomitant]
     Active Substance: CYCLOBENZAPRINE
  2. DUPIXENT [Suspect]
     Active Substance: DUPILUMAB
     Indication: ECZEMA
     Route: 058
     Dates: start: 20170801
  3. DESONIDE. [Concomitant]
     Active Substance: DESONIDE
  4. FOLIC ACID. [Concomitant]
     Active Substance: FOLIC ACID
  5. LEVOCETRIZINE [Concomitant]
     Active Substance: LEVOCETIRIZINE
  6. TACROLIMUS. [Concomitant]
     Active Substance: TACROLIMUS
  7. TRIAMCINOLONE [Concomitant]
     Active Substance: TRIAMCINOLONE
  8. ATORVASTATIN [Concomitant]
     Active Substance: ATORVASTATIN
  9. PREDNISONE. [Concomitant]
     Active Substance: PREDNISONE
  10. DUPIXENT [Suspect]
     Active Substance: DUPILUMAB
     Indication: ECZEMA
     Route: 058
     Dates: start: 2017

REACTIONS (4)
  - Lacrimation increased [Not Recovered/Not Resolved]
  - Eye pain [Not Recovered/Not Resolved]
  - Eyelid pain [Not Recovered/Not Resolved]
  - Dry eye [Not Recovered/Not Resolved]

NARRATIVE: CASE EVENT DATE: 2017
